FAERS Safety Report 10581960 (Version 4)
Quarter: 2015Q1

REPORT INFORMATION
  Report Type: Spontaneous
  Country: US (occurrence: US)
  Receive Date: 20141113
  Receipt Date: 20150204
  Transmission Date: 20150720
  Serious: No
  Sender: FDA-Public Use
  Company Number: US-PFIZER INC-2014308527

PATIENT
  Age: 68 Year
  Sex: Female
  Weight: 86 kg

DRUGS (24)
  1. PRAVASTATIN [Concomitant]
     Active Substance: PRAVASTATIN\PRAVASTATIN SODIUM
     Indication: BLOOD CHOLESTEROL ABNORMAL
     Dosage: 20 MG, 1X/DAY
  2. VITAMIN B COMPLEX [Concomitant]
     Active Substance: CYANOCOBALAMIN\DEXPANTHENOL\NIACINAMIDE\PYRIDOXINE HYDROCHLORIDE\RIBOFLAVIN 5^-PHOSPHATE SODIUM\THIAMINE HYDROCHLORIDE\VITAMIN B COMPLEX
     Dosage: UNK, 1X/DAY
  3. FLUOXETINE [Concomitant]
     Active Substance: FLUOXETINE\FLUOXETINE HYDROCHLORIDE
     Indication: DEPRESSION
     Dosage: 20 MG, 1X/DAY
  4. LYRICA [Suspect]
     Active Substance: PREGABALIN
     Dosage: 150 MG, 3X/DAY
  5. AXONA [Concomitant]
     Active Substance: TRICAPRYLIN
     Indication: SUPPLEMENTATION THERAPY
     Dosage: UNK (1 PKT)
  6. RESTASIS [Concomitant]
     Active Substance: CYCLOSPORINE
     Indication: DRY EYE
     Dosage: 2 GTT, 2X/DAY
  7. DICLOFENAC EPOLAMINE [Suspect]
     Active Substance: DICLOFENAC EPOLAMINE
     Indication: NEURALGIA
  8. DICLOFENAC EPOLAMINE [Suspect]
     Active Substance: DICLOFENAC EPOLAMINE
     Indication: FIBROMYALGIA
  9. DONEPEZIL [Concomitant]
     Active Substance: DONEPEZIL
     Indication: DEMENTIA
     Dosage: 10 MG, 2X/DAY
  10. AMITRIPTYLINE [Concomitant]
     Active Substance: AMITRIPTYLINE
     Indication: FEELING OF RELAXATION
     Dosage: 100 MG, 1X/DAY
  11. OMEGA-3 DHA [Concomitant]
     Indication: SUPPLEMENTATION THERAPY
     Dosage: 3075 MG, 3X/DAY
  12. RANITIDINE [Concomitant]
     Active Substance: RANITIDINE\RANITIDINE HYDROCHLORIDE
     Indication: GASTROOESOPHAGEAL REFLUX DISEASE
     Dosage: 150 MG, 2X/DAY
  13. DICLOFENAC EPOLAMINE [Suspect]
     Active Substance: DICLOFENAC EPOLAMINE
     Indication: MYALGIA
     Dosage: 75 MG, 2X/DAY
     Dates: start: 2007
  14. OMEPRAZOLE. [Concomitant]
     Active Substance: OMEPRAZOLE
     Indication: GASTROOESOPHAGEAL REFLUX DISEASE
     Dosage: 20 MG, 2X/DAY
  15. BUPROPION [Concomitant]
     Active Substance: BUPROPION
     Indication: DEPRESSION
     Dosage: 100 MG, 2X/DAY
  16. TRAZODONE [Concomitant]
     Active Substance: TRAZODONE HYDROCHLORIDE
     Indication: SLEEP DISORDER
  17. PRESSERVISION AREDS [Concomitant]
     Indication: VITAMIN SUPPLEMENTATION
     Dosage: UNK, 2X/DAY
  18. BACLOFEN. [Concomitant]
     Active Substance: BACLOFEN
     Indication: MUSCLE RELAXANT THERAPY
     Dosage: UNK, 1X/DAY (PM)
  19. LYRICA [Suspect]
     Active Substance: PREGABALIN
     Indication: FIBROMYALGIA
     Dosage: 150 MG, 2X/DAY
     Dates: start: 2007, end: 201411
  20. TIZANIDINE (TIZANIDINE) [Concomitant]
     Active Substance: TIZANIDINE
     Indication: MUSCLE RELAXANT THERAPY
     Dosage: 4 MG, UNK (1/2TABLET)
  21. CERAPLEX [Concomitant]
     Active Substance: DIETARY SUPPLEMENT
     Indication: DETOXIFICATION
     Dosage: UNK, 3X/DAY
  22. IMITREX [Concomitant]
     Active Substance: SUMATRIPTAN\SUMATRIPTAN SUCCINATE
     Indication: MIGRAINE
     Dosage: UNK (100 OR 150 MG), AS NEEDED
  23. NORCO [Concomitant]
     Active Substance: ACETAMINOPHEN\HYDROCODONE BITARTRATE
     Indication: PAIN
     Dosage: UNK, 2X/DAY (500/325)
  24. TRAZODONE [Concomitant]
     Active Substance: TRAZODONE HYDROCHLORIDE
     Indication: DEPRESSION
     Dosage: 150 MG, 1X/DAY

REACTIONS (3)
  - Drug ineffective [Recovered/Resolved]
  - Blood cholesterol increased [Not Recovered/Not Resolved]
  - Blood triglycerides increased [Not Recovered/Not Resolved]
